FAERS Safety Report 10117422 (Version 2)
Quarter: 2014Q2

REPORT INFORMATION
  Report Type: Spontaneous
  Country: US (occurrence: US)
  Receive Date: 20140425
  Receipt Date: 20140425
  Transmission Date: 20141212
  Serious: No
  Sender: FDA-Public Use
  Company Number: 2014SP001191

PATIENT
  Age: 53 Year
  Sex: Male
  Weight: 133.1 kg

DRUGS (7)
  1. METHOTREXATE [Suspect]
     Indication: ACUTE PROMYELOCYTIC LEUKAEMIA
     Route: 048
     Dates: start: 20140127
  2. PREDNISOLONE [Suspect]
     Indication: ACUTE PROMYELOCYTIC LEUKAEMIA
     Route: 048
     Dates: start: 20140127
  3. PIPERACILLIN/TAZOBACTAM [Suspect]
     Indication: NEUTROPENIA
     Route: 042
     Dates: start: 20140202, end: 20140204
  4. AUGMENTIN [Suspect]
     Indication: NEUTROPENIA
     Route: 048
     Dates: start: 20140204, end: 20140211
  5. MYLOTARG [Suspect]
     Indication: ACUTE PROMYELOCYTIC LEUKAEMIA
     Route: 042
     Dates: start: 20130724, end: 20140122
  6. MERCAPTOPURINE [Suspect]
     Indication: ACUTE PROMYELOCYTIC LEUKAEMIA
     Route: 048
     Dates: start: 20140127
  7. ZYBAN [Suspect]
     Indication: EX-TOBACCO USER
     Route: 048
     Dates: start: 20140204

REACTIONS (1)
  - Aspartate aminotransferase increased [Recovered/Resolved]
